FAERS Safety Report 9713976 (Version 2)
Quarter: 2015Q3

REPORT INFORMATION
  Report Type: Spontaneous
  Country: US (occurrence: US)
  Receive Date: 20131126
  Receipt Date: 20150803
  Transmission Date: 20151125
  Serious: No
  Sender: FDA-Public Use
  Company Number: US-GILEAD-2008-0018396

PATIENT
  Age: 28 Year
  Sex: Female
  Weight: 72.57 kg

DRUGS (10)
  1. LOVENOX [Concomitant]
     Active Substance: ENOXAPARIN SODIUM
  2. KLOR-CON [Concomitant]
     Active Substance: POTASSIUM CHLORIDE
  3. LASIX [Concomitant]
     Active Substance: FUROSEMIDE
  4. LETAIRIS [Suspect]
     Active Substance: AMBRISENTAN
     Indication: PULMONARY ARTERIAL HYPERTENSION
     Route: 048
     Dates: start: 20080924
  5. ADVAIR HFA [Concomitant]
     Active Substance: FLUTICASONE PROPIONATE\SALMETEROL XINAFOATE
  6. CELEBREX [Concomitant]
     Active Substance: CELECOXIB
  7. LEVOTHROID [Concomitant]
     Active Substance: LEVOTHYROXINE SODIUM
  8. OXYCONTIN [Concomitant]
     Active Substance: OXYCODONE HYDROCHLORIDE
  9. SPIRIVA [Concomitant]
     Active Substance: TIOTROPIUM BROMIDE MONOHYDRATE
  10. AZITHROMYCIN [Concomitant]
     Active Substance: AZITHROMYCIN ANHYDROUS

REACTIONS (1)
  - Peripheral swelling [None]
